FAERS Safety Report 23378584 (Version 1)
Quarter: 2024Q1

REPORT INFORMATION
  Report Type: Spontaneous
  Country: AU (occurrence: AU)
  Receive Date: 20240108
  Receipt Date: 20240108
  Transmission Date: 20240410
  Serious: Yes (Other)
  Sender: FDA-Public Use
  Company Number: AU-IGSA-BIG0027053

PATIENT
  Age: 39 Year
  Sex: Female

DRUGS (1)
  1. GAMUNEX-C [Suspect]
     Active Substance: HUMAN IMMUNOGLOBULIN G
     Indication: Immunodeficiency
     Dosage: 40 GRAM, TOTAL
     Route: 042
     Dates: start: 20231219, end: 20231219

REACTIONS (5)
  - Vision blurred [Recovered/Resolved]
  - Visual impairment [Recovered/Resolved]
  - Tension headache [Recovered/Resolved]
  - Loss of consciousness [Recovered/Resolved]
  - Unresponsive to stimuli [Recovered/Resolved]

NARRATIVE: CASE EVENT DATE: 20231219
